FAERS Safety Report 17900185 (Version 1)
Quarter: 2020Q2

REPORT INFORMATION
  Report Type: Report from Study
  Country: PE (occurrence: PE)
  Receive Date: 20200616
  Receipt Date: 20200616
  Transmission Date: 20200714
  Serious: Yes (Other)
  Sender: FDA-Public Use
  Company Number: NVSC2020PE167352

PATIENT
  Sex: Female

DRUGS (1)
  1. KISQALI [Suspect]
     Active Substance: RIBOCICLIB
     Indication: BREAST CANCER
     Dosage: 600 MG, QD
     Route: 048
     Dates: start: 20200504

REACTIONS (4)
  - Fatigue [Unknown]
  - Vomiting [Unknown]
  - Spinal fracture [Unknown]
  - Nausea [Unknown]

NARRATIVE: CASE EVENT DATE: 202005
